FAERS Safety Report 7729788-9 (Version None)
Quarter: 2011Q3

REPORT INFORMATION
  Report Type: 
  Country: None (occurrence: None)
  Receive Date: 20110906
  Receipt Date: 20110826
  Transmission Date: 20111222
  Serious: Yes (Death)
  Sender: FDA-Public Use
  Company Number: JP-ROCHE-771008

PATIENT
  Sex: Male
  Weight: 62 kg

DRUGS (9)
  1. PACLITAXEL [Suspect]
     Indication: LUNG ADENOCARCINOMA METASTATIC
     Route: 041
     Dates: start: 20110117, end: 20110328
  2. OLMESARTAN MEDOXOMIL [Concomitant]
     Route: 054
     Dates: start: 20061212
  3. CARBOPLATIN [Suspect]
     Indication: LUNG ADENOCARCINOMA METASTATIC
     Route: 041
     Dates: start: 20110117, end: 20110328
  4. ACTOS [Concomitant]
     Route: 048
     Dates: start: 20101224
  5. NORVASC [Concomitant]
     Route: 048
     Dates: start: 20051011
  6. NOVORAPID [Concomitant]
     Route: 058
     Dates: start: 20081022
  7. SENNOSIDE [Concomitant]
     Route: 048
     Dates: start: 20011026
  8. AVASTIN [Suspect]
     Indication: LUNG ADENOCARCINOMA
     Route: 041
     Dates: start: 20110117, end: 20110328
  9. ALOSENN [Concomitant]
     Dosage: FORM: GRANULATED POWDER
     Route: 048
     Dates: start: 20081028

REACTIONS (4)
  - INFECTION [None]
  - PYREXIA [None]
  - DEATH [None]
  - SEPTIC SHOCK [None]
